FAERS Safety Report 7894371-1 (Version None)
Quarter: 2011Q4

REPORT INFORMATION
  Report Type: 
  Country: None (occurrence: None)
  Receive Date: 20111104
  Receipt Date: 20111024
  Transmission Date: 20120403
  Serious: Yes (Other)
  Sender: FDA-Public Use
  Company Number: HU-ROCHE-1006982

PATIENT
  Age: 18 Year
  Sex: Male

DRUGS (8)
  1. MIDAZOLAM [Suspect]
     Indication: SEDATION
     Route: 042
  2. RISPERIDONE [Concomitant]
     Indication: SCHIZOPHRENIA
  3. CLOZAPINE [Concomitant]
     Dates: start: 20091001
  4. CLONAZEPAM [Suspect]
     Indication: SCHIZOPHRENIA
     Route: 065
  5. BIPERIDEN HYDROCHLORIDE TAB [Concomitant]
  6. CLONAZEPAM [Suspect]
     Route: 040
  7. HALOPERIDOL [Concomitant]
     Indication: PSYCHOTIC DISORDER
  8. OLANZAPINE [Concomitant]

REACTIONS (1)
  - DYSTONIA [None]
